FAERS Safety Report 6093067-9 (Version None)
Quarter: 2009Q1

REPORT INFORMATION
  Report Type: 
  Country: None (occurrence: None)
  Receive Date: 20090225
  Receipt Date: 20090216
  Transmission Date: 20090719
  Serious: Yes (Death)
  Sender: FDA-Public Use
  Company Number: JP-ABBOTT-09P-087-0558704-00

PATIENT
  Age: 57 Year
  Sex: Male

DRUGS (12)
  1. LEUPROLIDE ACETATE [Suspect]
     Indication: PROSTATE CANCER STAGE IV
     Route: 058
     Dates: start: 20060902, end: 20081027
  2. DEXAMETHASONE [Concomitant]
     Indication: PROSTATE CANCER STAGE IV
     Route: 048
     Dates: end: 20071208
  3. UFT [Concomitant]
     Indication: PROSTATE CANCER STAGE IV
     Route: 048
     Dates: end: 20060930
  4. FOSFESTROL TETRASODIUM [Concomitant]
     Indication: PROSTATE CANCER STAGE IV
     Route: 042
     Dates: end: 20070630
  5. CISPLATIN [Concomitant]
     Indication: PROSTATE CANCER STAGE IV
     Route: 042
     Dates: end: 20070630
  6. ACETYLSALICYLIC ACID SRT [Concomitant]
     Indication: PLATELET COUNT INCREASED
     Route: 048
     Dates: end: 20070721
  7. REBAMIPIDE [Concomitant]
     Indication: GASTRITIS
     Route: 048
     Dates: end: 20070804
  8. PURSENNID [Concomitant]
     Indication: CONSTIPATION
     Route: 048
     Dates: start: 20061014, end: 20071208
  9. ETODOLAC [Concomitant]
     Indication: CANCER PAIN
     Route: 048
     Dates: start: 20070303, end: 20070915
  10. PROPIVERINE HYDROCHLORIDE [Concomitant]
     Indication: POLLAKIURIA
     Dates: start: 20070310, end: 20070915
  11. MORPHINE HYDROCHLORIDE [Concomitant]
     Indication: CANCER PAIN
     Route: 048
     Dates: start: 20071219, end: 20071231
  12. FENTANYL [Concomitant]
     Indication: DRUG USE FOR UNKNOWN INDICATION
     Route: 062
     Dates: start: 20071231, end: 20080103

REACTIONS (2)
  - HYPOAESTHESIA [None]
  - PROSTATE CANCER [None]
